FAERS Safety Report 19964853 (Version 5)
Quarter: 2022Q2

REPORT INFORMATION
  Report Type: Spontaneous
  Country: US (occurrence: US)
  Receive Date: 20211018
  Receipt Date: 20220504
  Transmission Date: 20220721
  Serious: No
  Sender: FDA-Public Use
  Company Number: US-PFIZER INC-2021383968

PATIENT
  Age: 61 Year
  Sex: Female
  Weight: 49 kg

DRUGS (1)
  1. LYRICA [Suspect]
     Active Substance: PREGABALIN
     Indication: Fibromyalgia
     Dosage: 150 MG, 3X/DAY
     Dates: end: 20211010

REACTIONS (2)
  - Hypoacusis [Unknown]
  - Pain [Unknown]
